FAERS Safety Report 4452641-3 (Version None)
Quarter: 2004Q3

REPORT INFORMATION
  Report Type: 
  Country: None (occurrence: None)
  Receive Date: 20040916
  Receipt Date: 20040902
  Transmission Date: 20050211
  Serious: No
  Sender: FDA-Public Use
  Company Number: 04P-087-0272613-00

PATIENT
  Age: 30 Year
  Sex: Male

DRUGS (2)
  1. BIAXIN [Suspect]
     Indication: BACTERIAL INFECTION
     Dosage: 400 MG , 1 IN 1 D , PER ORAL
     Route: 048
     Dates: start: 20040831, end: 20040902
  2. PARACETAMOL [Concomitant]

REACTIONS (1)
  - RHABDOMYOLYSIS [None]
